FAERS Safety Report 23875130 (Version 1)
Quarter: 2024Q2

REPORT INFORMATION
  Report Type: Spontaneous
  Country: US (occurrence: US)
  Receive Date: 20240520
  Receipt Date: 20240520
  Transmission Date: 20240716
  Serious: No
  Sender: FDA-Public Use
  Company Number: US-CIPLA LTD.-2023US04297

PATIENT

DRUGS (9)
  1. ALBUTEROL [Suspect]
     Active Substance: ALBUTEROL
     Indication: Chronic obstructive pulmonary disease
     Dosage: 180 MCG, (2 PUFFS IN 4 HOURS)
     Dates: start: 2013
  2. ALBUTEROL [Suspect]
     Active Substance: ALBUTEROL
     Dosage: 180 MCG, (2 PUFFS IN 4 HOURS)
  3. ALBUTEROL [Suspect]
     Active Substance: ALBUTEROL
     Dosage: 180 MCG, (2 PUFFS IN 4 HOURS)
  4. ALBUTEROL [Suspect]
     Active Substance: ALBUTEROL
     Dosage: 180 MCG, (2 PUFFS IN 4 HOURS)
  5. ALBUTEROL [Suspect]
     Active Substance: ALBUTEROL
     Dosage: 180 MCG, (2 PUFFS IN 4 HOURS)
  6. LOSARTAN [Concomitant]
     Active Substance: LOSARTAN
     Indication: Hypertension
     Dosage: 100 MILLIGRAM, QD
     Route: 065
  7. LOSARTAN [Concomitant]
     Active Substance: LOSARTAN
     Dosage: 50 MG, UNK
     Route: 065
  8. LISINOPRIL [Concomitant]
     Active Substance: LISINOPRIL
     Indication: Hypertension
     Dosage: UNK
     Route: 065
  9. PRIMATENE MIST [Concomitant]
     Active Substance: EPINEPHRINE
     Indication: Chronic obstructive pulmonary disease
     Dosage: UNK, QD (ONCE IN A DAY)
     Route: 065

REACTIONS (8)
  - Condition aggravated [Unknown]
  - Dyspnoea exertional [Not Recovered/Not Resolved]
  - Weight decreased [Not Recovered/Not Resolved]
  - Device occlusion [Unknown]
  - Device delivery system issue [Unknown]
  - Device malfunction [Unknown]
  - Drug ineffective [Unknown]
  - Off label use [Unknown]
